FAERS Safety Report 23617250 (Version 1)
Quarter: 2024Q1

REPORT INFORMATION
  Report Type: Report from Study
  Country: US (occurrence: US)
  Receive Date: 20240311
  Receipt Date: 20240311
  Transmission Date: 20240410
  Serious: No
  Sender: FDA-Public Use
  Company Number: US-BIOVITRUM-2024-US-003280

PATIENT
  Age: 57 Year
  Sex: Male

DRUGS (1)
  1. KINERET [Suspect]
     Active Substance: ANAKINRA
     Indication: Rheumatoid arthritis
     Dosage: DAILY
     Route: 058
     Dates: start: 20240215

REACTIONS (13)
  - Injection site urticaria [Unknown]
  - Swelling [Unknown]
  - Erythema [Unknown]
  - Peripheral swelling [Unknown]
  - Weight decreased [Unknown]
  - Injection site irritation [Unknown]
  - Injection site pain [Unknown]
  - Joint swelling [Unknown]
  - Pain [Unknown]
  - Feeling abnormal [Unknown]
  - Injection site erythema [Unknown]
  - Urticaria [Unknown]
  - Injection site reaction [Unknown]
